FAERS Safety Report 6641924-4 (Version None)
Quarter: 2010Q1

REPORT INFORMATION
  Report Type: 
  Country: None (occurrence: None)
  Receive Date: 20100319
  Receipt Date: 20100308
  Transmission Date: 20100710
  Serious: Yes (Hospitalization, Other)
  Sender: FDA-Public Use
  Company Number: PHHY2010JP11247

PATIENT
  Age: 79 Year
  Sex: Female

DRUGS (2)
  1. NEORAL [Suspect]
     Indication: PUSTULAR PSORIASIS
     Dosage: UNK
     Route: 048
     Dates: start: 20100219
  2. RINDERON [Suspect]
     Dosage: 1 MG

REACTIONS (1)
  - LYMPHOCYTE COUNT DECREASED [None]
